FAERS Safety Report 18288821 (Version 5)
Quarter: 2022Q1

REPORT INFORMATION
  Report Type: Report from Study
  Country: US (occurrence: US)
  Receive Date: 20200921
  Receipt Date: 20220211
  Transmission Date: 20220423
  Serious: Yes (Other)
  Sender: FDA-Public Use
  Company Number: US-SHIRE-US202030038

PATIENT
  Age: 62 Year
  Sex: Female

DRUGS (2)
  1. HUMAN IMMUNOGLOBULIN G [Suspect]
     Active Substance: HUMAN IMMUNOGLOBULIN G
     Indication: Primary immunodeficiency syndrome
     Dosage: 130 GRAM
     Route: 042
  2. PRIVIGEN [Suspect]
     Active Substance: HUMAN IMMUNOGLOBULIN G
     Indication: Primary immunodeficiency syndrome
     Dosage: 130 GRAM
     Route: 065

REACTIONS (17)
  - Lyme disease [Unknown]
  - Anaphylactic reaction [Unknown]
  - Hallucination [Unknown]
  - Retinal disorder [Unknown]
  - Uveitis [Unknown]
  - Joint dislocation [Unknown]
  - Arthritis [Unknown]
  - Anaemia [Unknown]
  - Migraine [Unknown]
  - Sleep disorder [Unknown]
  - Hypophagia [Unknown]
  - Overdose [Unknown]
  - Rheumatoid nodule [Unknown]
  - Amnesia [Unknown]
  - Arthropathy [Unknown]
  - Infusion related reaction [Unknown]
  - Dysphonia [Unknown]

NARRATIVE: CASE EVENT DATE: 20200914
